FAERS Safety Report 10666557 (Version 7)
Quarter: 2015Q3

REPORT INFORMATION
  Report Type: Spontaneous
  Country: US (occurrence: US)
  Receive Date: 20141221
  Receipt Date: 20150716
  Transmission Date: 20151125
  Serious: Yes (Hospitalization, Other)
  Sender: FDA-Public Use
  Company Number: US-GLAXOSMITHKLINE-A0922750A

PATIENT
  Age: 85 Year
  Sex: Female
  Weight: 63.2 kg

DRUGS (9)
  1. MELPHALAN [Suspect]
     Active Substance: MELPHALAN
     Dosage: 8 MG, QD
     Route: 048
     Dates: start: 20110219, end: 20110225
  2. PREDNISONE. [Suspect]
     Active Substance: PREDNISONE
     Indication: PLASMA CELL MYELOMA
     Dosage: 20 MG TID FOR 7 DAYS
     Route: 048
     Dates: start: 20101029, end: 20101222
  3. PREDNISONE. [Suspect]
     Active Substance: PREDNISONE
     Dosage: 140 MG, TID
     Dates: start: 20100827, end: 20110225
  4. PREDNISONE. [Suspect]
     Active Substance: PREDNISONE
     Dosage: 20 MG, TID
     Route: 048
     Dates: start: 20101229, end: 20110127
  5. ALKERAN [Suspect]
     Active Substance: MELPHALAN
     Dosage: 8 MG, QD
     Route: 048
     Dates: end: 20110107
  6. PREDNISONE. [Suspect]
     Active Substance: PREDNISONE
     Dosage: 20 MG, QD
     Route: 048
     Dates: start: 20101112, end: 20101119
  7. MELPHALAN [Suspect]
     Active Substance: MELPHALAN
     Indication: PLASMA CELL MYELOMA
     Dosage: 12 MG, QD
     Route: 048
     Dates: start: 20100827, end: 20101115
  8. PREDNISONE. [Suspect]
     Active Substance: PREDNISONE
     Dosage: 60 MG, TID
     Route: 048
     Dates: start: 20110219, end: 20110225
  9. ALKERAN [Suspect]
     Active Substance: MELPHALAN
     Indication: PLASMA CELL MYELOMA
     Dosage: 12 MG, QD
     Route: 048
     Dates: start: 20101027

REACTIONS (8)
  - Agranulocytosis [Unknown]
  - Anaemia [Unknown]
  - Pancytopenia [Recovered/Resolved]
  - Cellulitis [Recovered/Resolved]
  - Pyrexia [Recovered/Resolved]
  - Injury [Recovered/Resolved]
  - Thrombocytopenia [Unknown]
  - Cerebrovascular accident [Recovered/Resolved]

NARRATIVE: CASE EVENT DATE: 20101121
